FAERS Safety Report 21567839 (Version 1)
Quarter: 2022Q4

REPORT INFORMATION
  Report Type: Spontaneous
  Country: IN (occurrence: IN)
  Receive Date: 20221108
  Receipt Date: 20221108
  Transmission Date: 20230113
  Serious: Yes (Other)
  Sender: FDA-Public Use
  Company Number: IN-PFIZER INC-2019395963

PATIENT
  Age: 66 Year
  Sex: Male

DRUGS (1)
  1. CRIZOTINIB [Suspect]
     Active Substance: CRIZOTINIB
     Indication: Non-small cell lung cancer
     Dosage: 250 MG, 2X/DAY
     Route: 048
     Dates: start: 20160209

REACTIONS (8)
  - Cerebral atrophy [Unknown]
  - Neoplasm progression [Unknown]
  - Pleural effusion [Unknown]
  - Atelectasis [Unknown]
  - Mediastinal shift [Unknown]
  - Pleural thickening [Unknown]
  - Spinal osteoarthritis [Unknown]
  - Blood glucose increased [Unknown]
